FAERS Safety Report 7007184-X (Version None)
Quarter: 2010Q3

REPORT INFORMATION
  Report Type: 
  Country: None (occurrence: None)
  Receive Date: 20100922
  Receipt Date: 20100908
  Transmission Date: 20110219
  Serious: Yes (Hospitalization)
  Sender: FDA-Public Use
  Company Number: DK-NOVOPROD-309097

PATIENT
  Age: 10 Year
  Sex: Male
  Weight: 21 kg

DRUGS (7)
  1. NORDITROPIN [Suspect]
     Indication: GROWTH HORMONE DEFICIENCY
     Dosage: 1 MG, QD
     Dates: start: 20091119, end: 20100325
  2. NORDITROPIN [Suspect]
     Dosage: 1 MG, QD
     Dates: start: 20100401, end: 20100401
  3. SALBUTAMOL [Concomitant]
     Dosage: RESPIRATORY
     Route: 055
  4. MOMETASONE FUROATE [Concomitant]
     Dosage: 50 MG PER DOSE
     Route: 045
  5. OMEPRAZOLE [Concomitant]
  6. BUDESONIDE [Concomitant]
     Dosage: RESPIRATORY
     Route: 055
  7. FORMOTEROL FUMARATE [Concomitant]
     Dosage: 12 MG

REACTIONS (1)
  - ASTHMA [None]
